FAERS Safety Report 24436132 (Version 1)
Quarter: 2024Q4

REPORT INFORMATION
  Report Type: Spontaneous
  Country: US (occurrence: US)
  Receive Date: 20241015
  Receipt Date: 20241015
  Transmission Date: 20250115
  Serious: No
  Sender: TAKEDA
  Company Number: US-TAKEDA-2024TUS100261

PATIENT
  Age: 71 Year
  Sex: Male

DRUGS (2)
  1. ACTOS [Suspect]
     Active Substance: PIOGLITAZONE HYDROCHLORIDE
     Indication: Product used for unknown indication
     Dosage: UNK
     Route: 065
  2. LENVIMA [Suspect]
     Active Substance: LENVATINIB
     Indication: Metastases to kidney
     Dosage: 18 MILLIGRAM, QD
     Route: 048

REACTIONS (5)
  - Asthenia [Unknown]
  - Dysphagia [Unknown]
  - Sleep disorder [Unknown]
  - Seasonal allergy [Unknown]
  - Weight decreased [Unknown]
